FAERS Safety Report 10073840 (Version 2)
Quarter: 2014Q2

REPORT INFORMATION
  Report Type: Spontaneous
  Country: US (occurrence: US)
  Receive Date: 20140411
  Receipt Date: 20140520
  Transmission Date: 20141212
  Serious: Yes (Hospitalization, Other)
  Sender: FDA-Public Use
  Company Number: US-FRI-1000066375

PATIENT
  Age: 45 Year
  Sex: Female

DRUGS (3)
  1. SAPHRIS [Suspect]
     Indication: BIPOLAR DISORDER
     Dosage: 5MG IN AM AND 15MG IN PM
     Route: 060
     Dates: start: 2012
  2. ANTIBIOTIC (NOS) [Suspect]
     Indication: INFLAMMATION
  3. RISPERDAL [Concomitant]
     Indication: BIPOLAR DISORDER
     Dosage: 2MG IN AM AND 6MG IN PM

REACTIONS (2)
  - Hypersensitivity vasculitis [Recovering/Resolving]
  - Diverticulitis [Unknown]
